FAERS Safety Report 10038431 (Version 10)
Quarter: 2015Q4

REPORT INFORMATION
  Report Type: Report from Study
  Country: BR (occurrence: BR)
  Receive Date: 20140326
  Receipt Date: 20151027
  Transmission Date: 20160304
  Serious: Yes (Hospitalization, Other)
  Sender: FDA-Public Use
  Company Number: PHHY2014BR016790

PATIENT
  Sex: Female
  Weight: 65 kg

DRUGS (10)
  1. AMLODIPINE [Suspect]
     Active Substance: AMLODIPINE BESYLATE
     Indication: BLOOD PRESSURE ABNORMAL
     Dosage: UNK UKN, 2 DAYS IN THE MORNING / 2 DAYS AT NIGHT
     Route: 065
     Dates: start: 2011
  2. LOSARTAN. [Suspect]
     Active Substance: LOSARTAN
     Indication: BLOOD PRESSURE ABNORMAL
     Dosage: 2 DF, (50 MG) DAILY
     Route: 065
     Dates: start: 2010
  3. PREDNISONE. [Concomitant]
     Active Substance: PREDNISONE
     Indication: STRESS
     Dosage: 1 DF, (5 MG) DAILY
     Route: 048
     Dates: start: 2010
  4. PURAN [Concomitant]
     Active Substance: LEVOTHYROXINE SODIUM
     Indication: HYPOTHYROIDISM
     Dosage: 50 MG
     Route: 065
  5. CABERGOLINE. [Concomitant]
     Active Substance: CABERGOLINE
     Indication: BLOOD PROLACTIN ABNORMAL
     Dosage: 2 DF (0.5 MG), PER WEEK
     Route: 048
     Dates: start: 2013
  6. CABERGOLINE. [Concomitant]
     Active Substance: CABERGOLINE
     Indication: ACROMEGALY
  7. SANDOSTATIN LAR DEPOT [Suspect]
     Active Substance: OCTREOTIDE ACETATE
     Indication: ACROMEGALY
     Dosage: 30 MG, EVERY 28 DAYS
     Route: 030
     Dates: start: 201101
  8. PURAN [Concomitant]
     Active Substance: LEVOTHYROXINE SODIUM
     Dosage: 75 MG
     Route: 065
  9. PURAN [Concomitant]
     Active Substance: LEVOTHYROXINE SODIUM
     Dosage: 100 MG
     Route: 065
     Dates: start: 201212
  10. LEVOTHYROXINE. [Concomitant]
     Active Substance: LEVOTHYROXINE
     Indication: HYPOTHYROIDISM
     Dosage: 1 DF (125 MG), DAILY
     Route: 048
     Dates: start: 2013

REACTIONS (16)
  - Fatigue [Recovered/Resolved]
  - Labyrinthitis [Recovering/Resolving]
  - Weight increased [Recovering/Resolving]
  - Memory impairment [Recovering/Resolving]
  - Diverticulitis [Recovering/Resolving]
  - Hypothalamo-pituitary disorder [Recovering/Resolving]
  - Insulin-like growth factor decreased [Unknown]
  - Blood pressure increased [Recovering/Resolving]
  - Therapeutic response decreased [Unknown]
  - Seizure [Recovering/Resolving]
  - Blood cortisol decreased [Recovered/Resolved]
  - Adrenal disorder [Recovered/Resolved]
  - Prehypertension [Unknown]
  - Malaise [Recovering/Resolving]
  - Asthenia [Recovered/Resolved]
  - Weight decreased [Recovered/Resolved]

NARRATIVE: CASE EVENT DATE: 2011
